FAERS Safety Report 5451309-4 (Version None)
Quarter: 2007Q3

REPORT INFORMATION
  Report Type: 
  Country: None (occurrence: None)
  Receive Date: 20070913
  Receipt Date: 20070809
  Transmission Date: 20080115
  Serious: No
  Sender: FDA-Public Use
  Company Number: US-JNJFOC-20070802607

PATIENT
  Age: 42 Year
  Sex: Male

DRUGS (2)
  1. INVEGA [Suspect]
     Route: 048
  2. INVEGA [Suspect]
     Indication: SCHIZOPHRENIA, PARANOID TYPE
     Route: 048

REACTIONS (1)
  - INAPPROPRIATE SCHEDULE OF DRUG ADMINISTRATION [None]
